FAERS Safety Report 21603018 (Version 1)
Quarter: 2022Q4

REPORT INFORMATION
  Report Type: Spontaneous
  Country: US (occurrence: US)
  Receive Date: 20221116
  Receipt Date: 20221116
  Transmission Date: 20230113
  Serious: Yes (Other)
  Sender: FDA-Public Use
  Company Number: US-BAYER-2022A155114

PATIENT
  Sex: Female

DRUGS (3)
  1. MIRENA [Suspect]
     Active Substance: LEVONORGESTREL
     Dosage: 20?G/DAY
     Route: 015
     Dates: start: 20221007
  2. UNSPECIFIED INGREDIENT [Concomitant]
     Active Substance: UNSPECIFIED INGREDIENT
  3. CANNABIS SATIVA SUBSP. INDICA TOP [Concomitant]
     Active Substance: CANNABIS SATIVA SUBSP. INDICA TOP

REACTIONS (17)
  - Genital haemorrhage [None]
  - Vaginal haemorrhage [None]
  - Pelvic pain [None]
  - Procedural pain [None]
  - Abdominal distension [None]
  - Abdominal pain lower [None]
  - Abnormal menstrual clots [None]
  - Malaise [None]
  - Vomiting [None]
  - Hot flush [None]
  - Hyperhidrosis [None]
  - Urinary tract infection [None]
  - Headache [None]
  - Nausea [None]
  - Alopecia [None]
  - Fatigue [None]
  - Decreased appetite [None]
